FAERS Safety Report 7523601-0 (Version None)
Quarter: 2011Q2

REPORT INFORMATION
  Report Type: 
  Country: None (occurrence: None)
  Receive Date: 20110601
  Receipt Date: 20110601
  Transmission Date: 20111010
  Serious: Yes (Hospitalization)
  Sender: FDA-Public Use
  Company Number: None

PATIENT
  Sex: Male
  Weight: 3.2387 kg

DRUGS (1)
  1. INFANT/CHILDREN GLYCERIN SUPPOS WALGREENS [Suspect]
     Dosage: RECTAL
     Route: 054
     Dates: start: 20110502, end: 20110513

REACTIONS (4)
  - PRODUCT SOLUBILITY ABNORMAL [None]
  - VOMITING [None]
  - IRRITABILITY [None]
  - ABDOMINAL DISTENSION [None]
